FAERS Safety Report 4292214-9 (Version None)
Quarter: 2004Q1

REPORT INFORMATION
  Report Type: 
  Country: None (occurrence: None)
  Receive Date: 20040126
  Receipt Date: 20030828
  Transmission Date: 20041129
  Serious: No
  Sender: FDA-Public Use
  Company Number: USA030742206

PATIENT
  Age: 72 Year
  Sex: Female
  Weight: 72 kg

DRUGS (16)
  1. FORTEO [Suspect]
     Indication: FRACTURE
     Dosage: 20UG/1 DAY
     Dates: start: 20030502
  2. FORTEO [Suspect]
     Indication: OSTEOPOROSIS
     Dosage: 20UG/1 DAY
     Dates: start: 20030502
  3. CITRACAL (CALCIUM CITRATE) [Concomitant]
  4. HYTRIN [Concomitant]
  5. BEXTRA [Concomitant]
  6. VICODIN [Concomitant]
  7. PREDNISONE [Concomitant]
  8. FORADIL [Concomitant]
  9. FLOVENT [Concomitant]
  10. ALUPENT [Concomitant]
  11. BUMETANIDE [Concomitant]
  12. POTASSIUM [Concomitant]
  13. AMBIEN [Concomitant]
  14. COUMADIN [Concomitant]
     Dates: start: 20030701
  15. LANOXIN [Concomitant]
     Dates: start: 20030701
  16. TIAZAC [Concomitant]

REACTIONS (4)
  - CARDIAC DISORDER [None]
  - DYSPNOEA [None]
  - FATIGUE [None]
  - HEART RATE INCREASED [None]
